FAERS Safety Report 12689115 (Version 1)
Quarter: 2016Q3

REPORT INFORMATION
  Report Type: Spontaneous
  Country: US (occurrence: US)
  Receive Date: 20160826
  Receipt Date: 20160826
  Transmission Date: 20161109
  Serious: Yes (Hospitalization)
  Sender: FDA-Public Use
  Company Number: US-ROCHE-1818899

PATIENT
  Age: 75 Year
  Sex: Male

DRUGS (3)
  1. TREANDA [Concomitant]
     Active Substance: BENDAMUSTINE HYDROCHLORIDE
     Indication: CHRONIC LYMPHOCYTIC LEUKAEMIA
     Route: 065
     Dates: start: 20120127, end: 20120224
  2. RITUXAN [Suspect]
     Active Substance: RITUXIMAB
     Indication: CHRONIC LYMPHOCYTIC LEUKAEMIA
     Route: 042
     Dates: start: 20120126, end: 20120223
  3. TREANDA [Concomitant]
     Active Substance: BENDAMUSTINE HYDROCHLORIDE
     Route: 065
     Dates: start: 20120126

REACTIONS (5)
  - Rash [Recovered/Resolved]
  - Thoracic cavity drainage [Recovered/Resolved]
  - Blood pressure decreased [Recovered/Resolved]
  - Herpes zoster [Recovering/Resolving]
  - Serum sickness [Recovered/Resolved]

NARRATIVE: CASE EVENT DATE: 20120301
